FAERS Safety Report 22003680 (Version 6)
Quarter: 2023Q1

REPORT INFORMATION
  Report Type: Report from Study
  Country: VN (occurrence: None)
  Receive Date: 20230217
  Receipt Date: 20230328
  Transmission Date: 20230418
  Serious: Yes (Death, Hospitalization)
  Sender: FDA-Public Use
  Company Number: VN-ROCHE-3277145

PATIENT
  Age: 73 Year
  Sex: Male
  Weight: 62 kg

DRUGS (32)
  1. ATEZOLIZUMAB [Suspect]
     Active Substance: ATEZOLIZUMAB
     Indication: Squamous cell carcinoma of lung
     Dosage: DOSE LAST STUDY DRUG ADMIN PRIOR AE/SAE 1680 MG?START DATE OF MOST RECENT DOSE OF STUDY DRUG PRIOR T
     Route: 041
     Dates: start: 20230113
  2. LEVOFLOXACIN [Concomitant]
     Active Substance: LEVOFLOXACIN
     Indication: Antibiotic therapy
     Route: 048
     Dates: start: 20230128, end: 20230206
  3. AUGBACTAM [Concomitant]
     Indication: Antibiotic therapy
     Route: 048
     Dates: start: 20230128, end: 20230206
  4. AGIFUROS [Concomitant]
     Route: 048
     Dates: start: 20230128, end: 20230206
  5. TATANOL [Concomitant]
     Indication: Analgesic therapy
     Route: 048
     Dates: start: 20230128, end: 20230206
  6. LOSARTAN [Concomitant]
     Active Substance: LOSARTAN
     Indication: Hypertension
     Route: 048
     Dates: start: 20230128, end: 20230206
  7. PLAVIX [Concomitant]
     Active Substance: CLOPIDOGREL BISULFATE
     Indication: Myocardial ischaemia
     Route: 048
  8. LEVOFLOXACIN [Concomitant]
     Active Substance: LEVOFLOXACIN
     Dosage: 0.5G/100ML
     Route: 042
     Dates: start: 20230206, end: 20230212
  9. MAGNESIUM SULFATE [Concomitant]
     Active Substance: MAGNESIUM SULFATE
     Route: 042
     Dates: start: 20230206, end: 20230206
  10. SODIUM CHLORIDE [Concomitant]
     Active Substance: SODIUM CHLORIDE
     Indication: Infusion
     Dosage: DOSE: 500 OTHER
     Route: 042
     Dates: start: 20230206, end: 20230206
  11. SODIUM CHLORIDE [Concomitant]
     Active Substance: SODIUM CHLORIDE
     Dosage: DOSE: 100 OTHER
     Route: 042
     Dates: start: 20230206, end: 20230208
  12. SODIUM CHLORIDE [Concomitant]
     Active Substance: SODIUM CHLORIDE
     Dosage: DOSE: 9 OTHER
     Route: 042
     Dates: start: 20230213, end: 20230213
  13. SODIUM CHLORIDE [Concomitant]
     Active Substance: SODIUM CHLORIDE
     Dosage: DOSE: 9 OTHER
     Route: 042
     Dates: start: 20230211, end: 20230211
  14. SODIUM CHLORIDE [Concomitant]
     Active Substance: SODIUM CHLORIDE
     Dosage: DOSE: 9 OTHER
     Route: 042
     Dates: start: 20230212, end: 20230212
  15. SODIUM CHLORIDE [Concomitant]
     Active Substance: SODIUM CHLORIDE
     Dosage: DOSE: 9 OTHER
     Route: 042
     Dates: start: 20230209, end: 20230213
  16. PIPERACILLIN [Concomitant]
     Active Substance: PIPERACILLIN
     Route: 042
     Dates: start: 20230206, end: 20230208
  17. COMBIVENT [Concomitant]
     Active Substance: ALBUTEROL SULFATE\IPRATROPIUM BROMIDE
     Dosage: DOSE: 10 OTHER
     Route: 055
     Dates: start: 20230206, end: 20230206
  18. COMBIVENT [Concomitant]
     Active Substance: ALBUTEROL SULFATE\IPRATROPIUM BROMIDE
     Dosage: DOSE: 2.5 OTHER
     Route: 055
     Dates: start: 20230210, end: 20230212
  19. COMBIVENT [Concomitant]
     Active Substance: ALBUTEROL SULFATE\IPRATROPIUM BROMIDE
     Dosage: DOSE: 7.5 OTHER
     Route: 055
     Dates: start: 20230213, end: 20230213
  20. COMBIVENT [Concomitant]
     Active Substance: ALBUTEROL SULFATE\IPRATROPIUM BROMIDE
     Dosage: DOSE: 7.5 OTHER
     Route: 055
     Dates: start: 20230211, end: 20230211
  21. COMBIVENT [Concomitant]
     Active Substance: ALBUTEROL SULFATE\IPRATROPIUM BROMIDE
     Dosage: DOSE: 7.5 OTHER
     Route: 055
     Dates: start: 20230212, end: 20230212
  22. BUDESONIDE [Concomitant]
     Active Substance: BUDESONIDE
     Route: 055
     Dates: start: 20230206, end: 20230206
  23. BUDESONIDE [Concomitant]
     Active Substance: BUDESONIDE
     Route: 055
     Dates: start: 20230210, end: 20230212
  24. BUDESONIDE [Concomitant]
     Active Substance: BUDESONIDE
     Route: 055
     Dates: start: 20230213, end: 20230213
  25. POTASSIUM CHLORIDE [Concomitant]
     Active Substance: POTASSIUM CHLORIDE
     Route: 042
     Dates: start: 20230206, end: 20230206
  26. VENTOLIN [Concomitant]
     Active Substance: ALBUTEROL SULFATE
     Route: 055
     Dates: start: 20230213, end: 20230213
  27. RIVAXORED [Concomitant]
     Route: 048
     Dates: start: 20230207, end: 20230213
  28. ACETAMINOPHEN [Concomitant]
     Active Substance: ACETAMINOPHEN
     Route: 042
     Dates: start: 20230207, end: 20230207
  29. ACETAMINOPHEN [Concomitant]
     Active Substance: ACETAMINOPHEN
     Route: 042
     Dates: start: 20230209, end: 20230209
  30. ACETAMINOPHEN [Concomitant]
     Active Substance: ACETAMINOPHEN
     Route: 042
     Dates: start: 20230208, end: 20230208
  31. MEROPENEM [Concomitant]
     Active Substance: MEROPENEM
     Route: 042
     Dates: start: 20230209, end: 20230213
  32. MIDAZOLAM [Concomitant]
     Active Substance: MIDAZOLAM
     Route: 042
     Dates: start: 20230210, end: 20230210

REACTIONS (1)
  - Pneumonia [Fatal]

NARRATIVE: CASE EVENT DATE: 20230128
